FAERS Safety Report 16908894 (Version 4)
Quarter: 2025Q2

REPORT INFORMATION
  Report Type: Spontaneous
  Country: US (occurrence: US)
  Receive Date: 20191011
  Receipt Date: 20250626
  Transmission Date: 20250716
  Serious: No
  Sender: PFIZER
  Company Number: US-PFIZER INC-2019439937

PATIENT
  Age: 69 Year
  Sex: Female
  Weight: 81.65 kg

DRUGS (2)
  1. METHOTREXATE SODIUM [Suspect]
     Active Substance: METHOTREXATE SODIUM
     Indication: Rheumatoid arthritis
     Dates: end: 2024
  2. METHOTREXATE SODIUM [Suspect]
     Active Substance: METHOTREXATE SODIUM
     Indication: Osteoarthritis

REACTIONS (3)
  - Drug hypersensitivity [Unknown]
  - Hepatic steatosis [Unknown]
  - Drug ineffective [Unknown]
